FAERS Safety Report 17541188 (Version 8)
Quarter: 2022Q3

REPORT INFORMATION
  Report Type: Spontaneous
  Country: JP (occurrence: JP)
  Receive Date: 20200313
  Receipt Date: 20220720
  Transmission Date: 20221027
  Serious: Yes (Hospitalization)
  Sender: FDA-Public Use
  Company Number: JP-MSD-M2020-05123

PATIENT
  Age: 52 Year
  Sex: Male
  Weight: 59 kg

DRUGS (15)
  1. KEYTRUDA [Suspect]
     Active Substance: PEMBROLIZUMAB
     Indication: Lung adenocarcinoma stage IV
     Dosage: 200 MILLIGRAM,ONCE EVERY 3-4 WEEKS
     Route: 041
     Dates: start: 20191111, end: 20200204
  2. KEYTRUDA [Suspect]
     Active Substance: PEMBROLIZUMAB
     Dosage: 200 MILLIGRAM
     Route: 041
     Dates: start: 2020
  3. CARBOPLATIN [Suspect]
     Active Substance: CARBOPLATIN
     Indication: Lung adenocarcinoma stage IV
     Dosage: 470 MILLIGRAM, EVERY 4 WEEKS
     Route: 041
     Dates: start: 20191111, end: 20191111
  4. CISPLATIN [Suspect]
     Active Substance: CISPLATIN
     Indication: Lung adenocarcinoma stage IV
     Dosage: 137 MILLIGRAM, EVERY 4 WEEKS
     Route: 041
     Dates: start: 20191210, end: 20200114
  5. ALIMTA [Concomitant]
     Active Substance: PEMETREXED DISODIUM
     Indication: Lung adenocarcinoma stage IV
     Dosage: 920 MILLIGRAM, EVERY 4 WEEKS
     Route: 041
     Dates: start: 20191111, end: 20200114
  6. VITAMINS [Concomitant]
     Active Substance: VITAMINS
     Indication: Malnutrition
     Dosage: 1 GRAM, QD
     Route: 048
     Dates: start: 20191029, end: 20200306
  7. TRIAZOLAM [Concomitant]
     Active Substance: TRIAZOLAM
     Indication: Insomnia
     Dosage: 0.125 MILLIGRAM, QD
     Route: 048
     Dates: start: 20191003
  8. NEXIUM [Concomitant]
     Active Substance: ESOMEPRAZOLE MAGNESIUM
     Indication: Gastritis
     Dosage: 20 MILLIGRAM, QD
     Route: 048
     Dates: start: 20191029, end: 20200227
  9. TRAMCET [Concomitant]
     Active Substance: ACETAMINOPHEN\TRAMADOL
     Indication: Procedural pain
     Dosage: 1 DOSAGE FORM, TID
     Route: 048
     Dates: start: 20190919, end: 20200303
  10. MAGNESIUM OXIDE [Concomitant]
     Active Substance: MAGNESIUM OXIDE
     Indication: Constipation
     Dosage: 500 MILLIGRAM, QD
     Route: 048
     Dates: start: 20190920, end: 20200227
  11. OLODATEROL HYDROCHLORIDE\TIOTROPIUM BROMIDE MONOHYDRATE [Concomitant]
     Active Substance: OLODATEROL HYDROCHLORIDE\TIOTROPIUM BROMIDE MONOHYDRATE
     Indication: Chronic obstructive pulmonary disease
     Dosage: 2 DOSAGE FORM, QD
     Route: 048
     Dates: start: 20191106
  12. FEBUXOSTAT [Concomitant]
     Active Substance: FEBUXOSTAT
     Indication: Hyperuricaemia
     Dosage: 10 MILLIGRAM, QD
     Route: 048
     Dates: start: 20191109
  13. SENNOSIDES A AND B [Concomitant]
     Active Substance: SENNOSIDES A AND B
     Indication: Constipation
     Dosage: 24 MILLIGRAM, QD
     Route: 048
     Dates: start: 20191114
  14. AMITIZA [Concomitant]
     Active Substance: LUBIPROSTONE
     Indication: Constipation
     Dosage: 24 MICROGRAM, QD
     Route: 048
     Dates: start: 20191116
  15. LYRICA [Concomitant]
     Active Substance: PREGABALIN
     Indication: Procedural pain
     Dosage: 25 MILLIGRAM, TID
     Route: 048
     Dates: start: 20191118, end: 20200227

REACTIONS (5)
  - Hypophysitis [Not Recovered/Not Resolved]
  - Renal disorder [Recovered/Resolved]
  - Neutrophil count decreased [Recovered/Resolved]
  - Adrenocorticotropic hormone deficiency [Unknown]
  - Off label use [Unknown]

NARRATIVE: CASE EVENT DATE: 20191118
